FAERS Safety Report 25157074 (Version 1)
Quarter: 2025Q2

REPORT INFORMATION
  Report Type: Spontaneous
  Country: US (occurrence: US)
  Receive Date: 20250403
  Receipt Date: 20250403
  Transmission Date: 20250717
  Serious: No
  Sender: BAYER
  Company Number: US-BAYER-2025A045362

PATIENT
  Sex: Female

DRUGS (1)
  1. MIRALAX [Suspect]
     Active Substance: POLYETHYLENE GLYCOL 3350
     Indication: Colonoscopy
     Dosage: 17 G, BID FOR 5 DAYS,ON LAST DAY  TAKE WHAT^S LEFT ON THE BOTTLE
     Route: 048

REACTIONS (1)
  - Product prescribing issue [Unknown]
